FAERS Safety Report 6915307-3 (Version None)
Quarter: 2010Q3

REPORT INFORMATION
  Report Type: 
  Country: None (occurrence: None)
  Receive Date: 20100809
  Receipt Date: 20090921
  Transmission Date: 20110219
  Serious: No
  Sender: FDA-Public Use
  Company Number: US-ABBOTT-09P-163-0598831-00

PATIENT
  Sex: Female

DRUGS (3)
  1. DEPAKOTE ER [Suspect]
     Indication: CONVULSION
     Dates: start: 20080101
  2. DILANTIN [Concomitant]
     Indication: CONVULSION
  3. CORTEF [Concomitant]
     Indication: ADDISON'S DISEASE
     Dates: start: 20080101

REACTIONS (2)
  - CONVULSION [None]
  - DRUG INEFFECTIVE [None]
